FAERS Safety Report 6327339-7 (Version None)
Quarter: 2009Q3

REPORT INFORMATION
  Report Type: 
  Country: None (occurrence: None)
  Receive Date: 20090825
  Receipt Date: 20090813
  Transmission Date: 20100115
  Serious: Yes (Hospitalization, Other)
  Sender: FDA-Public Use
  Company Number: JP-PFIZER INC-2009238159

PATIENT
  Age: 68 Year

DRUGS (38)
  1. CAMPTOSAR [Suspect]
     Indication: COLON CANCER
     Dosage: 166.7 MG/M2, 250 MG
     Route: 041
     Dates: start: 20090427, end: 20090427
  2. FLUOROURACIL [Suspect]
     Indication: COLON CANCER
     Dosage: 330 MG/M2, 500 MG
     Route: 040
     Dates: start: 20081215, end: 20090121
  3. FLUOROURACIL [Suspect]
     Dosage: 2000 MG/M2, 3000 MG
     Route: 041
     Dates: start: 20081215, end: 20090121
  4. FLUOROURACIL [Suspect]
     Dosage: 270 MG/M2, 400 MG
     Route: 040
     Dates: start: 20090204, end: 20090406
  5. FLUOROURACIL [Suspect]
     Dosage: 1600 MG/M2, 2400 MG
     Route: 041
     Dates: start: 20090204, end: 20090406
  6. FLUOROURACIL [Suspect]
     Dosage: 400 MG/M2, 600 MG
     Route: 040
     Dates: start: 20090427, end: 20090427
  7. FLUOROURACIL [Suspect]
     Dosage: 2400 MG/M2, 3500 MG
     Route: 041
     Dates: start: 20090427, end: 20090427
  8. OXALIPLATIN [Suspect]
     Indication: COLON CANCER
     Dosage: 64 MG/M2,100 MG
     Route: 041
     Dates: start: 20081215, end: 20090121
  9. OXALIPLATIN [Suspect]
     Dosage: 52 MG/M2, 80 MG
     Dates: start: 20090204, end: 20090406
  10. AVASTIN [Suspect]
     Indication: COLON CANCER
     Dosage: 200 MG, UNK
     Route: 041
     Dates: start: 20090105, end: 20090406
  11. AVASTIN [Suspect]
     Dosage: 400 MG, UNK
     Route: 041
     Dates: start: 20090427, end: 20090427
  12. CALCIUM LEVOFOLINATE [Concomitant]
     Indication: COLON CANCER
     Dosage: 160 MG/M2, 250 MG
     Route: 041
     Dates: start: 20081215
  13. CALCIUM LEVOFOLINATE [Concomitant]
     Dosage: 130 MG/M2, 200 MG
     Route: 041
     Dates: start: 20090204
  14. CALCIUM LEVOFOLINATE [Concomitant]
     Dosage: 200 MG/M2, 300 MG
     Route: 041
     Dates: start: 20090427
  15. DECADRON [Concomitant]
     Indication: PREMEDICATION
     Dosage: 8 MG, UNK
     Route: 041
     Dates: start: 20081215, end: 20090427
  16. GRANISETRON [Concomitant]
     Indication: PREMEDICATION
     Dosage: 3 MG, UNK
     Route: 041
     Dates: start: 20081215, end: 20090427
  17. LENDORMIN [Concomitant]
     Dosage: 0.25 MG, UNK
     Route: 048
     Dates: start: 20070620, end: 20090521
  18. PARIET [Concomitant]
     Dosage: 10 MG, UNK
     Route: 048
     Dates: start: 20070730, end: 20090521
  19. SILECE [Concomitant]
     Dosage: 1 MG, UNK
     Route: 048
     Dates: start: 20070813, end: 20090521
  20. DOGMATYL [Concomitant]
     Dosage: 50 MG, 2X/DAY
     Route: 048
     Dates: start: 20070813, end: 20090521
  21. PRIMPERAN [Concomitant]
     Indication: NAUSEA
     Dosage: 10 MG, UNK
     Route: 041
     Dates: start: 20090107
  22. RAMOSETRON HYDROCHLORIDE [Concomitant]
     Indication: NAUSEA
     Dosage: 0.1 MG, UNK
     Route: 048
     Dates: start: 20090108, end: 20090122
  23. TAIPERACILIN [Concomitant]
     Indication: PYREXIA
     Dosage: 2 G, 2X/DAY
     Route: 041
     Dates: start: 20090113, end: 20090116
  24. MEROPEN [Concomitant]
     Indication: PYREXIA
     Dosage: 0.5 G, 3X/DAY
     Route: 041
     Dates: start: 20090116, end: 20090120
  25. MICAFUNGIN SODIUM [Concomitant]
     Indication: PYREXIA
     Dosage: 150MG-100MG
     Route: 041
     Dates: start: 20090118, end: 20090521
  26. DECADRON [Concomitant]
     Indication: NAUSEA
     Dosage: 24 MG, 2X/DAY
     Route: 048
     Dates: start: 20090120, end: 20090122
  27. LEVOFLOXACIN [Concomitant]
     Indication: PYREXIA
     Dosage: 200 MG, 2X/DAY
     Route: 048
     Dates: start: 20090121, end: 20090508
  28. GRAN [Concomitant]
     Indication: NEUTROPHIL COUNT DECREASED
     Dosage: 75 UG, UNK
     Route: 058
     Dates: start: 20090124
  29. LOXONIN [Concomitant]
     Indication: PYREXIA
     Dosage: 60 MG, 3X/DAY
     Route: 048
     Dates: start: 20090220, end: 20090430
  30. FERROMIA [Concomitant]
     Indication: HAEMOGLOBIN DECREASED
     Dosage: 100 MG, 2X/DAY
     Route: 048
     Dates: start: 20090220, end: 20090520
  31. NAVOBAN [Concomitant]
     Indication: NAUSEA
     Dosage: 5 MG, UNK
     Route: 048
     Dates: start: 20090223, end: 20090227
  32. OXYCONTIN [Concomitant]
     Indication: PAIN
     Dosage: 20 MG, 2X/DAY
     Route: 048
     Dates: start: 20090428
  33. FIRSTCIN [Concomitant]
     Dosage: 3 G, UNK
     Dates: start: 20090507, end: 20090521
  34. CONCENTRATED HUMAN RED BLOOD CELLS [Concomitant]
     Dosage: 2 DF, UNK
     Route: 041
     Dates: start: 20090509, end: 20090510
  35. VANCOMYCIN [Concomitant]
     Dosage: 1 G, UNK
     Dates: start: 20090519, end: 20090521
  36. PRODIF [Concomitant]
     Dosage: 400MG-200MG
     Route: 042
     Dates: start: 20090522, end: 20090604
  37. BIAPENEM [Concomitant]
     Dosage: 0.6 G, UNK
     Route: 042
     Dates: start: 20090527, end: 20090601
  38. CIPROFLOXACIN [Concomitant]
     Dosage: 600 MG, UNK
     Route: 042
     Dates: start: 20090602, end: 20090606

REACTIONS (2)
  - INTERSTITIAL LUNG DISEASE [None]
  - PLEURAL EFFUSION [None]
